FAERS Safety Report 10886913 (Version 9)
Quarter: 2021Q2

REPORT INFORMATION
  Report Type: Spontaneous
  Country: US (occurrence: US)
  Receive Date: 20150304
  Receipt Date: 20210615
  Transmission Date: 20210716
  Serious: No
  Sender: FDA-Public Use
  Company Number: US-PFIZER INC-2015072718

PATIENT
  Age: 66 Year
  Sex: Female
  Weight: 53 kg

DRUGS (28)
  1. LYRICA [Suspect]
     Active Substance: PREGABALIN
     Dosage: 25 MG (IN THE MORNING, OPTIONAL 1 CAPSULE AT NOON/MIDDAY)
     Route: 048
     Dates: start: 20191118
  2. COLACE [Concomitant]
     Active Substance: DOCUSATE SODIUM
     Dosage: 50 MG, 2X/DAY
     Route: 048
  3. LIDODERM [Concomitant]
     Active Substance: LIDOCAINE
     Dosage: UNK
     Dates: start: 20140709
  4. XANAX [Concomitant]
     Active Substance: ALPRAZOLAM
     Dosage: UNK
  5. LYRICA [Suspect]
     Active Substance: PREGABALIN
     Dosage: 1 CAPSULE (50 MG TOTAL) BY MOUTH EVERY EVENING
     Route: 048
     Dates: start: 20201117
  6. VITAMIN D3 [Concomitant]
     Active Substance: CHOLECALCIFEROL
     Dosage: 2000 IU, 1X/DAY
     Route: 048
  7. PENLAC [Concomitant]
     Active Substance: CICLOPIROX
     Dosage: 8 %, UNK (ONCE PER DAY X 3 MONTHS)
  8. PROAIR HFA [Concomitant]
     Active Substance: ALBUTEROL SULFATE
     Dosage: 90 UG, UNK (90 MCG/ACTUATION INHALER)
  9. VALIUM [Concomitant]
     Active Substance: DIAZEPAM
     Indication: ANXIETY
     Dosage: 2 MG, AS NEEDED
     Route: 048
  10. LIDODERM [Concomitant]
     Active Substance: LIDOCAINE
     Dosage: 700 MG, UNK (700 MG/PATCH)
  11. PERCOCET [Concomitant]
     Active Substance: ACETAMINOPHEN\OXYCODONE HYDROCHLORIDE
     Indication: AKATHISIA
     Dosage: UNK, AS NEEDED
  12. THERAGRAN [Concomitant]
     Active Substance: VITAMINS
     Dosage: 1 DF, 1X/DAY
     Route: 048
  13. LYRICA [Suspect]
     Active Substance: PREGABALIN
     Indication: FIBROMYALGIA
     Dosage: 75 MG, DAILY (25 MG EVERY MORNING AND 50 MG EVERY EVENING)
     Route: 048
     Dates: start: 20150213
  14. LYRICA [Suspect]
     Active Substance: PREGABALIN
     Dosage: 50 MG, ONCE DAILT (EVERY EVENING)
     Route: 048
  15. CYTOMEL [Concomitant]
     Active Substance: LIOTHYRONINE SODIUM
     Dosage: 25 ?G, 1X/DAY
     Route: 048
  16. ULTRAM [Concomitant]
     Active Substance: TRAMADOL HYDROCHLORIDE
     Dosage: UNK, AS NEEDED (TAKE 2 TABLETS, 100MG TOTAL EVERY 6 HOURS AS NEEDED)
     Route: 048
     Dates: start: 20151121
  17. ZOSTAVAX [Concomitant]
     Active Substance: VARICELLA-ZOSTER VIRUS STRAIN OKA/MERCK LIVE ANTIGEN
     Dosage: UNK (19,400 UNIT/0.65 ML)
     Dates: start: 20140910
  18. ULTRAM [Concomitant]
     Active Substance: TRAMADOL HYDROCHLORIDE
     Indication: PAIN
     Dosage: UNK, AS NEEDED (TAKE 2 TABLETS, 100 MG TOTAL EVERY 8 HOURS AS NEEDED)
     Route: 048
     Dates: start: 20150112
  19. PENLAC [Concomitant]
     Active Substance: CICLOPIROX
     Indication: PARONYCHIA
     Dosage: UNK, 1X/DAY
     Dates: start: 20140324
  20. REQUIP [Concomitant]
     Active Substance: ROPINIROLE HYDROCHLORIDE
     Dosage: 0.25 MG, 2X/DAY
     Route: 048
     Dates: start: 20141120
  21. LYRICA [Suspect]
     Active Substance: PREGABALIN
     Dosage: 25 MG (IN THE MORNING, OPTIONAL 1 CAPSULE AT NOON/MIDDAY)
     Route: 048
     Dates: start: 20201117
  22. ULTRAM [Concomitant]
     Active Substance: TRAMADOL HYDROCHLORIDE
     Dosage: UNK, AS NEEDED (TAKE 2 TABLETS, 100MG TOTAL EVERY 6 HOURS AS NEEDED)
     Route: 048
     Dates: start: 20151221
  23. VALIUM [Concomitant]
     Active Substance: DIAZEPAM
     Dosage: 2 MG, UNK
  24. LYRICA [Suspect]
     Active Substance: PREGABALIN
     Dosage: 75 MG, DAILY (25 MG EVERY MORNING AND 50 MG EVERY EVENING)
     Route: 048
     Dates: start: 20160111
  25. ULTRAM [Concomitant]
     Active Substance: TRAMADOL HYDROCHLORIDE
     Dosage: UNK, AS NEEDED (TAKE 2 TABLETS, 100MG TOTAL EVERY 6 HOURS AS NEEDED)
     Route: 048
  26. MIRAPEX [Concomitant]
     Active Substance: PRAMIPEXOLE DIHYDROCHLORIDE
     Dosage: 0.125 MG, 1X/DAY (EVERY EVENING, NIGHTLY)
     Route: 048
  27. PROAIR HFA [Concomitant]
     Active Substance: ALBUTEROL SULFATE
     Dosage: UNK
     Dates: start: 20140123
  28. MILK THISTLE [Concomitant]
     Active Substance: DIETARY SUPPLEMENT\HERBALS\MILK THISTLE
     Dosage: 150 MG, 1X/DAY
     Route: 048

REACTIONS (8)
  - Musculoskeletal stiffness [Unknown]
  - Erythema of eyelid [Unknown]
  - Back pain [Unknown]
  - Neck pain [Unknown]
  - Blepharitis [Unknown]
  - Fatigue [Unknown]
  - Burning sensation [Unknown]
  - Paraesthesia [Unknown]
